FAERS Safety Report 9219794 (Version 3)
Quarter: 2013Q2

REPORT INFORMATION
  Report Type: Spontaneous
  Country: US (occurrence: US)
  Receive Date: 20130409
  Receipt Date: 20130509
  Transmission Date: 20140414
  Serious: No
  Sender: FDA-Public Use
  Company Number: US-ROXANE LABORATORIES, INC.-2013-RO-00455RO

PATIENT
  Sex: Female

DRUGS (1)
  1. LITHIUM CARBONATE [Suspect]
     Dosage: 300 MG

REACTIONS (5)
  - Pain [Unknown]
  - Sleep terror [Unknown]
  - Anxiety [Unknown]
  - Antipsychotic drug level below therapeutic [Unknown]
  - Product quality issue [Unknown]
